FAERS Safety Report 7491627-1 (Version None)
Quarter: 2011Q2

REPORT INFORMATION
  Report Type: 
  Country: None (occurrence: None)
  Receive Date: 20110519
  Receipt Date: 20110505
  Transmission Date: 20111010
  Serious: Yes (Hospitalization)
  Sender: FDA-Public Use
  Company Number: US-JNJFOC-20110503478

PATIENT
  Sex: Female
  Weight: 68.49 kg

DRUGS (2)
  1. INFLIXIMAB, RECOMBINANT [Suspect]
     Indication: PSORIASIS
     Route: 042
     Dates: start: 20060701, end: 20101112
  2. METHOTREXATE [Concomitant]
     Indication: PSORIASIS
     Dates: start: 20050601

REACTIONS (2)
  - UTERINE CANCER [None]
  - CERVIX CARCINOMA [None]
